FAERS Safety Report 8498980 (Version 4)
Quarter: 2012Q4

REPORT INFORMATION
  Report Type: Report from Study
  Country: IT (occurrence: IT)
  Receive Date: 20120409
  Receipt Date: 20120918
  Transmission Date: 20130627
  Serious: Yes (Hospitalization)
  Sender: FDA-Public Use
  Company Number: IT-JNJFOC-20120400296

PATIENT
  Age: 12 Year
  Sex: Male
  Weight: 27.2 kg

DRUGS (4)
  1. INFLIXIMAB, RECOMBINANT [Suspect]
     Indication: CROHN^S DISEASE
     Route: 065
     Dates: start: 20120308
  2. INFLIXIMAB, RECOMBINANT [Suspect]
     Indication: CROHN^S DISEASE
     Route: 065
     Dates: start: 20110405
  3. ANTIBIOTIC, UNSPECIFIED [Concomitant]
     Indication: CROHN^S DISEASE
  4. 5-ASA [Concomitant]
     Indication: CROHN^S DISEASE
     Route: 054

REACTIONS (1)
  - Crohn^s disease [Recovered/Resolved]
